FAERS Safety Report 6577276-8 (Version None)
Quarter: 2010Q1

REPORT INFORMATION
  Report Type: 
  Country: None (occurrence: None)
  Receive Date: 20100210
  Receipt Date: 20100128
  Transmission Date: 20100710
  Serious: Yes (Hospitalization)
  Sender: FDA-Public Use
  Company Number: GB-BAUSCH-2010BL000560

PATIENT

DRUGS (2)
  1. PREDNISOLONE [Suspect]
     Indication: WEGENER'S GRANULOMATOSIS
  2. GUSPERIMUS HYDROCHLORIDE [Concomitant]
     Indication: WEGENER'S GRANULOMATOSIS

REACTIONS (1)
  - PNEUMONIA [None]
